FAERS Safety Report 8995091 (Version 2)
Quarter: 2013Q2

REPORT INFORMATION
  Report Type: Spontaneous
  Country: JP (occurrence: JP)
  Receive Date: 20130102
  Receipt Date: 20130403
  Transmission Date: 20140414
  Serious: Yes (Other)
  Sender: FDA-Public Use
  Company Number: JP-TEVA-378245ISR

PATIENT
  Age: 59 Year
  Sex: Male

DRUGS (1)
  1. CISPLATIN [Suspect]
     Indication: NASOPHARYNGEAL CANCER
     Dates: start: 201207

REACTIONS (7)
  - Dermatitis [Unknown]
  - Leukopenia [Unknown]
  - Anaemia [Unknown]
  - Thrombocytopenia [Unknown]
  - Dysphagia [Unknown]
  - Pharyngitis [Unknown]
  - Weight decreased [Unknown]
